FAERS Safety Report 9041389 (Version 1)
Quarter: 2013Q1

REPORT INFORMATION
  Report Type: Spontaneous
  Country: US (occurrence: None)
  Receive Date: 20130128
  Receipt Date: 20130128
  Transmission Date: 20140127
  Serious: Yes (Other)
  Sender: FDA-Public Use
  Company Number: None

PATIENT
  Sex: Male

DRUGS (1)
  1. LEVETIRACETAM [Suspect]
     Indication: CONVULSION
     Dosage: 250MG  5 TABS/DAY  ORALLY?2008  X  2 MAN
     Route: 048

REACTIONS (2)
  - Convulsion [None]
  - Abdominal pain upper [None]
